FAERS Safety Report 12567236 (Version 3)
Quarter: 2017Q2

REPORT INFORMATION
  Report Type: Report from Study
  Country: CO (occurrence: CO)
  Receive Date: 20160718
  Receipt Date: 20170412
  Transmission Date: 20170830
  Serious: Yes (Other)
  Sender: FDA-Public Use
  Company Number: CO-REGENERON PHARMACEUTICALS, INC.-2016-19390

PATIENT

DRUGS (1)
  1. EYLEA [Suspect]
     Active Substance: AFLIBERCEPT
     Indication: RETINAL VEIN OCCLUSION
     Dosage: UNK
     Dates: start: 20130827, end: 20150907

REACTIONS (4)
  - Retinal vein occlusion [Unknown]
  - Intraocular pressure increased [Unknown]
  - Dermatitis [Unknown]
  - Glaucoma [Unknown]

NARRATIVE: CASE EVENT DATE: 201412
